FAERS Safety Report 4561217-9 (Version None)
Quarter: 2005Q1

REPORT INFORMATION
  Report Type: 
  Country: None (occurrence: None)
  Receive Date: 20050124
  Receipt Date: 20050110
  Transmission Date: 20050727
  Serious: Yes (Hospitalization)
  Sender: FDA-Public Use
  Company Number: 2005012853

PATIENT
  Age: 32 Year
  Sex: Male

DRUGS (1)
  1. NICOTINE [Suspect]
     Indication: SMOKING CESSATION THERAPY
     Dosage: 52.5 MG /30CM2 ONCE

REACTIONS (9)
  - ARTHRALGIA [None]
  - COMPLEMENT FACTOR C4 INCREASED [None]
  - GENERALISED ERYTHEMA [None]
  - INFLUENZA LIKE ILLNESS [None]
  - LEUKOCYTOCLASTIC VASCULITIS [None]
  - LEUKOCYTOSIS [None]
  - LUNG DISORDER [None]
  - RED BLOOD CELL SEDIMENTATION RATE INCREASED [None]
  - SKIN NECROSIS [None]
